FAERS Safety Report 15570696 (Version 1)
Quarter: 2018Q4

REPORT INFORMATION
  Report Type: Spontaneous
  Country: FR (occurrence: FR)
  Receive Date: 20181031
  Receipt Date: 20181031
  Transmission Date: 20190205
  Serious: Yes (Hospitalization)
  Sender: FDA-Public Use
  Company Number: FR-JNJFOC-20181040427

PATIENT
  Age: 85 Year
  Sex: Female
  Weight: 65 kg

DRUGS (8)
  1. TRAMADOL HYDROCHLORIDE AND ACETAMINOPHEN [Suspect]
     Active Substance: ACETAMINOPHEN\TRAMADOL HYDROCHLORIDE
     Indication: PRODUCT USED FOR UNKNOWN INDICATION
     Route: 065
  2. ULTRAVIST [Suspect]
     Active Substance: IOPROMIDE
     Indication: COMPUTERISED TOMOGRAM CORONARY ARTERY
     Route: 042
     Dates: start: 20180809, end: 20180809
  3. DUOPLAVIN [Concomitant]
     Active Substance: ASPIRIN\CLOPIDOGREL
     Route: 065
  4. SERESTA [Concomitant]
     Active Substance: OXAZEPAM
     Route: 065
  5. SERESTA [Concomitant]
     Active Substance: OXAZEPAM
     Route: 065
  6. LOSARTAN POTASSIUM. [Concomitant]
     Active Substance: LOSARTAN POTASSIUM
     Route: 065
  7. DETENSIEL [Concomitant]
     Active Substance: BISOPROLOL FUMARATE
     Route: 065
  8. PAROXETINE HYDROCHLORIDE. [Concomitant]
     Active Substance: PAROXETINE HYDROCHLORIDE
     Route: 065

REACTIONS (1)
  - Compartment syndrome [Recovered/Resolved with Sequelae]

NARRATIVE: CASE EVENT DATE: 20180809
